FAERS Safety Report 10261688 (Version 2)
Quarter: 2014Q3

REPORT INFORMATION
  Report Type: Spontaneous
  Country: CN (occurrence: CN)
  Receive Date: 20140626
  Receipt Date: 20140711
  Transmission Date: 20150326
  Serious: Yes (Other)
  Sender: FDA-Public Use
  Company Number: CN-ABBVIE-14K-035-1252065-00

PATIENT
  Age: 48 Year
  Sex: Female

DRUGS (5)
  1. SODIUM VALPROATE [Concomitant]
     Active Substance: VALPROATE SODIUM
     Indication: PRODUCT USED FOR UNKNOWN INDICATION
  2. DEPAKINE CHRONO [Suspect]
     Active Substance: VALPROATE SODIUM
     Route: 048
     Dates: start: 20140403, end: 20140403
  3. DEPAKINE CHRONO [Suspect]
     Active Substance: VALPROATE SODIUM
     Route: 048
     Dates: start: 20140404, end: 20140527
  4. DEPAKINE CHRONO [Suspect]
     Active Substance: VALPROATE SODIUM
     Route: 048
     Dates: start: 20140528, end: 20140609
  5. DEPAKINE CHRONO [Suspect]
     Active Substance: VALPROATE SODIUM
     Indication: EPILEPSY
     Route: 048
     Dates: start: 20131225, end: 20140402

REACTIONS (9)
  - Brain neoplasm [Not Recovered/Not Resolved]
  - Decreased appetite [Recovered/Resolved]
  - Deafness [Recovering/Resolving]
  - Apathy [Recovered/Resolved]
  - Coma [Recovering/Resolving]
  - Somnolence [Recovered/Resolved]
  - Aphasia [Unknown]
  - Incontinence [Unknown]
  - Tremor [Unknown]

NARRATIVE: CASE EVENT DATE: 20140326
